FAERS Safety Report 4808538-X (Version None)
Quarter: 2005Q4

REPORT INFORMATION
  Report Type: 
  Country: None (occurrence: None)
  Receive Date: 20051021
  Receipt Date: 20011217
  Transmission Date: 20060501
  Serious: No
  Sender: FDA-Public Use
  Company Number: US_011279468

PATIENT
  Age: 34 Year
  Sex: Female

DRUGS (4)
  1. OLANZAPINE [Suspect]
     Indication: DELIRIUM
     Dosage: 15 MG/DAY
     Dates: start: 20000701
  2. OLANZAPINE [Suspect]
     Indication: HALLUCINATION, AUDITORY
     Dosage: 15 MG/DAY
     Dates: start: 20000701
  3. HALOPERIDOL [Concomitant]
  4. LEVOMEPROMAZINE [Concomitant]

REACTIONS (8)
  - ABORTION SPONTANEOUS [None]
  - AMENORRHOEA [None]
  - DRUG EXPOSURE DURING PREGNANCY [None]
  - DRY MOUTH [None]
  - INTRA-UTERINE DEATH [None]
  - TWIN PREGNANCY [None]
  - WEIGHT INCREASED [None]
  - WHITE BLOOD CELL COUNT DECREASED [None]
